FAERS Safety Report 6050613-9 (Version None)
Quarter: 2009Q1

REPORT INFORMATION
  Report Type: 
  Country: None (occurrence: None)
  Receive Date: 20090121
  Receipt Date: 20090121
  Transmission Date: 20090719
  Serious: Yes (Other)
  Sender: FDA-Public Use
  Company Number: None

PATIENT
  Age: 66 Year
  Sex: Female
  Weight: 63.5036 kg

DRUGS (2)
  1. ARIMIDEX [Suspect]
     Indication: BREAST CANCER
     Dosage: 1MG OD PO
     Route: 048
     Dates: start: 20080501, end: 20081001
  2. ARIMIDEX [Suspect]
     Indication: BREAST CANCER
     Dosage: 1MG OD PO
     Route: 048
     Dates: start: 20081001, end: 20081001

REACTIONS (1)
  - DYSPNOEA [None]
